APPROVED DRUG PRODUCT: GLYCOPYRROLATE
Active Ingredient: GLYCOPYRROLATE
Strength: 0.6MG/3ML (0.2MG/ML)
Dosage Form/Route: SOLUTION;INTRAMUSCULAR, INTRAVENOUS
Application: N214919 | Product #001
Applicant: FRESENIUS KABI USA LLC
Approved: Apr 21, 2022 | RLD: Yes | RS: Yes | Type: RX